FAERS Safety Report 6398845-4 (Version None)
Quarter: 2009Q4

REPORT INFORMATION
  Report Type: 
  Country: None (occurrence: None)
  Receive Date: 20091013
  Receipt Date: 20091007
  Transmission Date: 20100525
  Serious: Yes (Hospitalization, Other)
  Sender: FDA-Public Use
  Company Number: CHPA2009US19776

PATIENT
  Sex: Female

DRUGS (4)
  1. EXCEDRIN (MIGRAINE) [Suspect]
     Dosage: UNK, UNK
  2. REBIF [Suspect]
     Indication: MULTIPLE SCLEROSIS
     Dosage: 44 UG, 3 IN 1 WEEK
     Route: 058
     Dates: start: 20080815
  3. NAPROXEN [Suspect]
     Dosage: UNK, UNK
  4. SOLU-MEDROL [Concomitant]
     Dosage: UNK, 1 IN 1 MONTH
     Route: 042

REACTIONS (4)
  - DUODENAL ULCER HAEMORRHAGE [None]
  - ENDOSCOPY [None]
  - HAEMOGLOBIN DECREASED [None]
  - TRANSFUSION [None]
